FAERS Safety Report 5165055-8 (Version None)
Quarter: 2006Q4

REPORT INFORMATION
  Report Type: 
  Country: None (occurrence: None)
  Receive Date: 20061124
  Receipt Date: 20061116
  Transmission Date: 20070319
  Serious: Yes (Other)
  Sender: FDA-Public Use
  Company Number: 2006110057

PATIENT
  Age: 67 Year
  Sex: Female

DRUGS (5)
  1. ALDAZIDA (HYDROCHLOROTHIAZIDE, SPIRONOLACTONE) [Suspect]
     Indication: DIURETIC EFFECT
     Dosage: PRN, ORAL
     Route: 048
     Dates: start: 19990101
  2. XENICAL [Concomitant]
  3. XANTINON B12 (CHOLINE CHLORIDE, LIVER EXTRACT, METHIONINE, VITAMIN B12 [Concomitant]
  4. GLUCOVANCE [Concomitant]
  5. BROMAZEPAM (BROMAZEPAM) [Concomitant]

REACTIONS (4)
  - BREAST CANCER FEMALE [None]
  - CONDITION AGGRAVATED [None]
  - DIABETES MELLITUS [None]
  - RENAL CELL CARCINOMA STAGE UNSPECIFIED [None]
